FAERS Safety Report 5376602-5 (Version None)
Quarter: 2007Q2

REPORT INFORMATION
  Report Type: 
  Country: None (occurrence: None)
  Receive Date: 20070628
  Receipt Date: 20070618
  Transmission Date: 20071010
  Serious: Yes (Disabling)
  Sender: FDA-Public Use
  Company Number: 2007JP002646

PATIENT
  Age: 76 Year
  Sex: Female
  Weight: 37.3 kg

DRUGS (3)
  1. FUNGUARD(MICAFUNGIN) INJECTION [Suspect]
     Indication: CANDIDA PNEUMONIA
     Dosage: 100 MG, UID/QD, IV DRIP
     Route: 041
     Dates: start: 20060531, end: 20070607
  2. AMPICILLIN SODIUM W/SULBACTAM SODIUM (AMPICILLIN SODIUM, SULBACTAM SOD [Concomitant]
  3. PAZUCROSS (PAZUFLOXACIN) [Concomitant]

REACTIONS (6)
  - CARDIAC FAILURE ACUTE [None]
  - CONDITION AGGRAVATED [None]
  - HEPATIC FUNCTION ABNORMAL [None]
  - INFECTION [None]
  - NO THERAPEUTIC RESPONSE [None]
  - RENAL IMPAIRMENT [None]
